FAERS Safety Report 12517485 (Version 1)
Quarter: 2016Q2

REPORT INFORMATION
  Report Type: Spontaneous
  Country: DE (occurrence: DE)
  Receive Date: 20160630
  Receipt Date: 20160630
  Transmission Date: 20160815
  Serious: Yes (Other)
  Sender: FDA-Public Use
  Company Number: DE-DRREDDYS-GER/GER/16/0081026

PATIENT
  Age: 0 Year
  Sex: Male
  Weight: 4.25 kg

DRUGS (1)
  1. SERTRALINE [Suspect]
     Active Substance: SERTRALINE HYDROCHLORIDE
     Indication: DEPRESSION
     Dosage: IN THE BEGINNING 25 MG/D, LATER INCREASED TO 50 MG/D
     Route: 063

REACTIONS (2)
  - Apparent life threatening event [Recovered/Resolved]
  - Exposure during breast feeding [Unknown]
